FAERS Safety Report 10205104 (Version 1)
Quarter: 2014Q2

REPORT INFORMATION
  Report Type: Spontaneous
  Country: JP (occurrence: JP)
  Receive Date: 20140529
  Receipt Date: 20140529
  Transmission Date: 20141212
  Serious: Yes (Hospitalization, Other)
  Sender: FDA-Public Use
  Company Number: JP-WATSON-2014-10947

PATIENT
  Age: 10 Year
  Sex: Female
  Weight: 28.7 kg

DRUGS (4)
  1. ZONISAMIDE (WATSON LABORATORIES) [Suspect]
     Indication: EPILEPSY
     Dosage: UNK
     Route: 065
  2. VALPROIC ACID [Concomitant]
     Indication: EPILEPSY
     Dosage: UNK
     Route: 065
  3. PHENOBARBITAL [Concomitant]
     Indication: EPILEPSY
     Dosage: UNK
     Route: 065
  4. CLONAZEPAM [Concomitant]
     Indication: EPILEPSY
     Dosage: UNK
     Route: 065

REACTIONS (3)
  - Calculus urinary [Recovered/Resolved]
  - Hydronephrosis [Recovered/Resolved]
  - Renal failure acute [Unknown]
